FAERS Safety Report 8196744-9 (Version None)
Quarter: 2012Q1

REPORT INFORMATION
  Report Type: 
  Country: None (occurrence: None)
  Receive Date: 20120309
  Receipt Date: 20120305
  Transmission Date: 20120608
  Serious: Yes (Hospitalization)
  Sender: FDA-Public Use
  Company Number: PHEH2012US005086

PATIENT
  Age: 11 Year
  Sex: Female

DRUGS (1)
  1. TOBI [Suspect]

REACTIONS (1)
  - INFECTIVE PULMONARY EXACERBATION OF CYSTIC FIBROSIS [None]
